FAERS Safety Report 10273412 (Version 1)
Quarter: 2014Q3

REPORT INFORMATION
  Report Type: Report from Study
  Country: CN (occurrence: CN)
  Receive Date: 20140702
  Receipt Date: 20140702
  Transmission Date: 20150326
  Serious: Yes (Death, Other)
  Sender: FDA-Public Use
  Company Number: CN-ASTELLAS-2014US007755

PATIENT
  Age: 68 Year
  Sex: Male

DRUGS (1)
  1. ERLOTINIB [Suspect]
     Active Substance: ERLOTINIB
     Indication: NON-SMALL CELL LUNG CANCER
     Route: 048
     Dates: start: 20120801

REACTIONS (7)
  - Hepatic cyst [Unknown]
  - Cholecystitis [Unknown]
  - Bone erosion [Unknown]
  - Lung cyst [Unknown]
  - Cholelithiasis [Unknown]
  - Respiratory failure [Fatal]
  - Goitre [Unknown]
